FAERS Safety Report 5472225-8 (Version None)
Quarter: 2007Q3

REPORT INFORMATION
  Report Type: 
  Country: None (occurrence: None)
  Receive Date: 20070926
  Receipt Date: 20070910
  Transmission Date: 20080115
  Serious: Yes (Hospitalization)
  Sender: FDA-Public Use
  Company Number: 018632

PATIENT
  Age: 72 Year
  Sex: Male
  Weight: 72 kg

DRUGS (13)
  1. AMIODARONE HCL [Suspect]
     Dosage: 400 MG, QD,; 200 MG, QD,
  2. SIMVASTATIN [Suspect]
     Dosage: 80 MG, QD,
  3. ATAZANAVIR SULFATE [Suspect]
     Indication: HIV INFECTION
     Dosage: 400 MG, QD,
  4. STAVUDINE [Concomitant]
  5. DELAVIRDINE (DELAVIRDINE) [Concomitant]
  6. ISOSORBIDE MONONITRATE [Concomitant]
  7. CLOPIDOGREL [Concomitant]
  8. ACETYLSALICYLIC ACID SRT [Concomitant]
  9. METOPROLOL TARTRATE [Concomitant]
  10. TERAZOSIN HCL [Concomitant]
  11. FAMOTIDINE [Concomitant]
  12. POLYETHYLENE GLYCOL (MACROGOL) [Concomitant]
  13. DOCUSATE (DOCUSATE) [Concomitant]

REACTIONS (7)
  - BLOOD PRESSURE DIASTOLIC DECREASED [None]
  - BLOOD THYROID STIMULATING HORMONE INCREASED [None]
  - DIALYSIS [None]
  - DRUG INTERACTION [None]
  - HEART RATE DECREASED [None]
  - RENAL FAILURE ACUTE [None]
  - RHABDOMYOLYSIS [None]
